FAERS Safety Report 5464476-3 (Version None)
Quarter: 2007Q3

REPORT INFORMATION
  Report Type: 
  Country: None (occurrence: None)
  Receive Date: 20070921
  Receipt Date: 20070914
  Transmission Date: 20080115
  Serious: Yes (Other)
  Sender: FDA-Public Use
  Company Number: US-SANOFI-SYNTHELABO-F01200701136

PATIENT
  Sex: Female
  Weight: 64.5 kg

DRUGS (11)
  1. COMPAZINE [Concomitant]
     Indication: NAUSEA
     Dates: start: 20070911
  2. ZOFRAN [Concomitant]
     Indication: NAUSEA
     Dates: start: 20070911
  3. SPIRONOLACTONE [Concomitant]
     Dates: start: 20070906, end: 20070913
  4. ETODOLAC [Concomitant]
     Dates: start: 20030101, end: 20070101
  5. EVISTA [Concomitant]
     Indication: OSTEOPOROSIS
     Dates: start: 20070101
  6. WELLBUTRIN [Concomitant]
     Indication: ANXIETY
     Dates: start: 20020101
  7. LEVOTHYROXINE SODIUM [Concomitant]
     Indication: HYPOTHYROIDISM
     Dates: start: 19820101
  8. ATENOLOL [Concomitant]
     Indication: HYPERTENSION
     Dates: start: 20020101, end: 20070910
  9. BEVACIZUMAB [Suspect]
     Route: 041
     Dates: start: 20070905, end: 20070905
  10. DOCETAXEL [Suspect]
     Route: 041
     Dates: start: 20070905, end: 20070905
  11. OXALIPLATIN [Suspect]
     Route: 041
     Dates: start: 20070905, end: 20070905

REACTIONS (1)
  - SUPRAVENTRICULAR TACHYCARDIA [None]
